FAERS Safety Report 8978248 (Version 1)
Quarter: 2012Q4

REPORT INFORMATION
  Report Type: 
  Country: ES (occurrence: ES)
  Receive Date: 20121221
  Receipt Date: 20121221
  Transmission Date: 20130627
  Serious: Yes (Hospitalization)
  Sender: FDA-Public Use
  Company Number: ES-ELI_LILLY_AND_COMPANY-ES201212004884

PATIENT
  Sex: Male
  Weight: 74 kg

DRUGS (6)
  1. FORSTEO [Suspect]
     Indication: OSTEOPOROSIS
     Dosage: 20 u, qd
     Route: 058
     Dates: start: 20110508
  2. SERETIDE [Concomitant]
     Indication: ACUTE PULMONARY OEDEMA
     Dosage: UNK, qd
     Route: 055
  3. VENTOLIN                                /SCH/ [Concomitant]
     Indication: ACUTE PULMONARY OEDEMA
     Dosage: 2 DF, qd
     Route: 055
  4. TEOFILINA [Concomitant]
     Indication: ACUTE PULMONARY OEDEMA
     Dosage: 200 mg, qd
     Route: 048
  5. ACIDO FOLICO [Concomitant]
     Dosage: UNK, qd
     Route: 048
  6. OMEPRAZOL [Concomitant]
     Dosage: UNK, qd
     Route: 048

REACTIONS (1)
  - Acute pulmonary oedema [Recovering/Resolving]
